FAERS Safety Report 5365733-1 (Version None)
Quarter: 2007Q2

REPORT INFORMATION
  Report Type: 
  Country: None (occurrence: None)
  Receive Date: 20070611
  Receipt Date: 20061214
  Transmission Date: 20071010
  Serious: Yes (Death)
  Sender: FDA-Public Use
  Company Number: USA-2006-0025961

PATIENT

DRUGS (1)
  1. OXYCONTIN [Suspect]
     Indication: DRUG ABUSER

REACTIONS (1)
  - OVERDOSE [None]
